FAERS Safety Report 8571276-4 (Version None)
Quarter: 2012Q3

REPORT INFORMATION
  Report Type: 
  Country: None (occurrence: None)
  Receive Date: 20120806
  Receipt Date: 20120730
  Transmission Date: 20120928
  Serious: Yes (Other)
  Sender: FDA-Public Use
  Company Number: GT-ABBOTT-12P-069-0962153-00

PATIENT
  Age: 53 Year
  Sex: Female

DRUGS (2)
  1. LYRICA [Concomitant]
     Indication: BACK PAIN
     Route: 048
  2. HUMIRA [Suspect]
     Indication: RHEUMATOID ARTHRITIS
     Route: 058
     Dates: start: 20120301, end: 20120701

REACTIONS (1)
  - TUBERCULIN TEST POSITIVE [None]
